FAERS Safety Report 8028388-3 (Version None)
Quarter: 2012Q1

REPORT INFORMATION
  Report Type: 
  Country: None (occurrence: None)
  Receive Date: 20120106
  Receipt Date: 20120102
  Transmission Date: 20120608
  Serious: Yes (Hospitalization)
  Sender: FDA-Public Use
  Company Number: FR-BAYER-2011-120936

PATIENT
  Age: 63 Year
  Sex: Female
  Weight: 63 kg

DRUGS (1)
  1. MOXIFLOXACIN HCL [Suspect]
     Indication: LUNG DISORDER
     Dosage: 1 DF, QD
     Route: 048
     Dates: start: 20080801

REACTIONS (5)
  - ROTATOR CUFF SYNDROME [None]
  - ARTHRALGIA [None]
  - TENDON RUPTURE [None]
  - MOBILITY DECREASED [None]
  - CARPAL TUNNEL SYNDROME [None]
